FAERS Safety Report 13688873 (Version 1)
Quarter: 2017Q2

REPORT INFORMATION
  Report Type: Spontaneous
  Country: US (occurrence: US)
  Receive Date: 20170624
  Receipt Date: 20170624
  Transmission Date: 20170830
  Serious: Yes (Other)
  Sender: FDA-Public Use
  Company Number: None

PATIENT
  Age: 41 Year
  Sex: Female
  Weight: 137.2 kg

DRUGS (6)
  1. LOSARTAN POTASSIUM. [Concomitant]
     Active Substance: LOSARTAN POTASSIUM
  2. BASAGLAR [Suspect]
     Active Substance: INSULIN GLARGINE
     Indication: TYPE 1 DIABETES MELLITUS
     Dosage: QUANTITY:25 UNITS;?
     Route: 058
     Dates: start: 20170524, end: 20170621
  3. MYCOPHENOLATE [Concomitant]
     Active Substance: MYCOPHENOLIC ACID
  4. DOXAZOSIN MESYLATE. [Concomitant]
     Active Substance: DOXAZOSIN MESYLATE
  5. METOPROLOL TARTRATE. [Concomitant]
     Active Substance: METOPROLOL TARTRATE
  6. TACROLIMUS. [Concomitant]
     Active Substance: TACROLIMUS

REACTIONS (5)
  - Anxiety [None]
  - Head discomfort [None]
  - Cardiac flutter [None]
  - Heart rate increased [None]
  - Insomnia [None]

NARRATIVE: CASE EVENT DATE: 20170524
